FAERS Safety Report 7894280-8 (Version None)
Quarter: 2011Q4

REPORT INFORMATION
  Report Type: 
  Country: None (occurrence: None)
  Receive Date: 20111104
  Receipt Date: 20111103
  Transmission Date: 20120403
  Serious: Yes (Hospitalization)
  Sender: FDA-Public Use
  Company Number: US-ROCHE-1009150

PATIENT
  Age: 36 Year
  Sex: Female
  Weight: 78 kg

DRUGS (2)
  1. AVASTIN [Suspect]
     Indication: BREAST CANCER METASTATIC
     Dosage: MOST RECENT DOSE PRIOR TO SAE 15/SEP/2011
     Route: 042
     Dates: start: 20110504
  2. IXABEPILONE [Suspect]
     Indication: BREAST CANCER METASTATIC
     Dosage: MOST RECENT DOSE PRIOR TO SAE 15/SEP/2011
     Route: 042
     Dates: start: 20110504

REACTIONS (3)
  - NON-CARDIAC CHEST PAIN [None]
  - CONSTIPATION [None]
  - HYPONATRAEMIA [None]
